FAERS Safety Report 15667678 (Version 1)
Quarter: 2018Q4

REPORT INFORMATION
  Report Type: Spontaneous
  Country: ES (occurrence: ES)
  Receive Date: 20181128
  Receipt Date: 20181128
  Transmission Date: 20190205
  Serious: Yes (Life-Threatening, Hospitalization, Other)
  Sender: FDA-Public Use
  Company Number: PHHY2018ES167915

PATIENT
  Age: 44 Year
  Sex: Female

DRUGS (3)
  1. LEVOTHYROXINE SODIUM. [Concomitant]
     Active Substance: LEVOTHYROXINE SODIUM
     Indication: PAPILLARY THYROID CANCER
     Dosage: 200 UG, QD (SUPPRESSIVE DOSES)
     Route: 065
  2. DEXAMETHASONE. [Suspect]
     Active Substance: DEXAMETHASONE
     Indication: TOXICITY TO VARIOUS AGENTS
     Dosage: UNK(MEDICATION ERROR, MISUSE)
     Route: 065
  3. LIOTHYRONINE [Suspect]
     Active Substance: LIOTHYRONINE
     Indication: PAPILLARY THYROID CANCER
     Dosage: 25 MG, Q12H, TABLET (MISUSE, MEDICATION ERROR)
     Route: 048

REACTIONS (26)
  - Asthenia [Recovered/Resolved]
  - Sinus tachycardia [Recovered/Resolved]
  - Agitation [Recovered/Resolved]
  - Hypertransaminasaemia [Recovered/Resolved]
  - Disorientation [Recovered/Resolved]
  - Atrial fibrillation [Recovered/Resolved]
  - Vomiting [Recovered/Resolved]
  - Aggression [Recovered/Resolved]
  - Confusional state [Recovered/Resolved]
  - Palpitations [Recovered/Resolved]
  - Seizure [Recovered/Resolved]
  - Delirium [Recovered/Resolved]
  - Product preparation error [Recovered/Resolved]
  - Hyperhidrosis [Recovered/Resolved]
  - Abnormal behaviour [Recovered/Resolved]
  - Ventricular extrasystoles [Recovered/Resolved]
  - Dyspnoea [Recovered/Resolved]
  - Accidental overdose [Recovered/Resolved]
  - Myopathy [Recovered/Resolved]
  - Pulmonary oedema [Recovered/Resolved]
  - Nervous system disorder [Recovered/Resolved]
  - Cardiac failure [Recovered/Resolved]
  - Anaemia [Recovered/Resolved]
  - Haemodynamic instability [Recovered/Resolved]
  - Hallucination, visual [Recovered/Resolved]
  - Toxicity to various agents [Recovered/Resolved]
